FAERS Safety Report 9709378 (Version 2)
Quarter: 2013Q4

REPORT INFORMATION
  Report Type: Spontaneous
  Country: CZ (occurrence: CZ)
  Receive Date: 20131126
  Receipt Date: 20131206
  Transmission Date: 20140711
  Serious: Yes (Hospitalization)
  Sender: FDA-Public Use
  Company Number: CZ-ROCHE-1305812

PATIENT
  Age: 86 Year
  Sex: Male

DRUGS (8)
  1. MABTHERA [Suspect]
     Indication: B-CELL LYMPHOMA
     Route: 042
     Dates: start: 20131031, end: 20131114
  2. MABTHERA [Suspect]
     Indication: THROMBOCYTOSIS
  3. OXYPHYLLIN [Concomitant]
     Indication: CEREBRAL ARTERIOSCLEROSIS
     Route: 048
  4. DIAPREL MR [Concomitant]
     Indication: DIABETES MELLITUS
     Route: 048
  5. MILURIT [Concomitant]
     Indication: HYPERURICAEMIA
     Route: 048
  6. HYDROCORTISONE [Concomitant]
     Indication: PREMEDICATION
     Route: 065
  7. DITHIADEN [Concomitant]
     Indication: PREMEDICATION
     Dosage: 1 TABLET
     Route: 065
  8. PARALEN [Concomitant]
     Indication: PREMEDICATION

REACTIONS (4)
  - Transient ischaemic attack [Recovering/Resolving]
  - Circulatory collapse [Recovered/Resolved]
  - Dyspnoea [Recovered/Resolved]
  - Cerebrovascular accident [Unknown]
